FAERS Safety Report 17845256 (Version 8)
Quarter: 2020Q3

REPORT INFORMATION
  Report Type: Report from Study
  Country: BR (occurrence: BR)
  Receive Date: 20200601
  Receipt Date: 20200907
  Transmission Date: 20201103
  Serious: Yes (Other)
  Sender: FDA-Public Use
  Company Number: NVSC2020BR066640

PATIENT
  Age: 47 Year
  Sex: Female
  Weight: 48 kg

DRUGS (10)
  1. KISQALI [Suspect]
     Active Substance: RIBOCICLIB
     Dosage: 3 DF, QD (FOR 21 DAYS AND INTERVAL OF 7 DAYS)
     Route: 048
     Dates: start: 202001
  2. AROMASIN [Concomitant]
     Active Substance: EXEMESTANE
     Indication: METASTASES TO LIVER
  3. MORPHINE [Concomitant]
     Active Substance: MORPHINE
     Indication: PRODUCT USED FOR UNKNOWN INDICATION
     Dosage: UNK
     Route: 065
  4. KISQALI [Suspect]
     Active Substance: RIBOCICLIB
     Dosage: UNK (3 PER DAY
     Route: 065
     Dates: start: 20200128, end: 20200617
  5. KISQALI [Suspect]
     Active Substance: RIBOCICLIB
     Indication: BREAST CANCER
     Dosage: 3 DF, QD (FOR 21 DAYS AND FOR BREAK 21 DAYS)
     Route: 048
     Dates: start: 20200117
  6. AROMASIN [Concomitant]
     Active Substance: EXEMESTANE
     Indication: METASTASES TO BONE
     Dosage: UNK
     Route: 065
     Dates: start: 201912
  7. TYLEX [Concomitant]
     Indication: PRODUCT USED FOR UNKNOWN INDICATION
     Dosage: UNK
     Route: 065
  8. AROMASIN [Concomitant]
     Active Substance: EXEMESTANE
     Indication: BREAST CANCER
     Dosage: 1 DF, QD
     Route: 065
     Dates: start: 201911
  9. KISQALI [Suspect]
     Active Substance: RIBOCICLIB
     Dosage: 3 DF, QD, DURING 21 DAYS WITH 7 DAYS OF PAUSE
     Route: 065
     Dates: start: 20200128
  10. KISQALI [Suspect]
     Active Substance: RIBOCICLIB
     Dosage: UNK
     Route: 065
     Dates: start: 20200128, end: 20200801

REACTIONS (14)
  - Breast cancer [Not Recovered/Not Resolved]
  - Bone neoplasm [Unknown]
  - Nausea [Not Recovered/Not Resolved]
  - Back pain [Recovering/Resolving]
  - Dry skin [Not Recovered/Not Resolved]
  - Pain [Not Recovered/Not Resolved]
  - Malignant neoplasm progression [Not Recovered/Not Resolved]
  - Skeletal injury [Unknown]
  - Skeletal injury [Not Recovered/Not Resolved]
  - Tumour marker increased [Not Recovered/Not Resolved]
  - Spinal column injury [Not Recovered/Not Resolved]
  - Decreased appetite [Not Recovered/Not Resolved]
  - Drug ineffective [Unknown]
  - Pelvic bone injury [Unknown]

NARRATIVE: CASE EVENT DATE: 202002
